FAERS Safety Report 12651661 (Version 1)
Quarter: 2016Q3

REPORT INFORMATION
  Report Type: Spontaneous
  Country: FR (occurrence: FR)
  Receive Date: 20160815
  Receipt Date: 20160815
  Transmission Date: 20161109
  Serious: Yes (Other)
  Sender: FDA-Public Use
  Company Number: FR-PFIZER INC-2016382609

PATIENT
  Age: 39 Year
  Sex: Male

DRUGS (4)
  1. AERIUS [Concomitant]
     Active Substance: DESLORATADINE
     Indication: NASOPHARYNGITIS
     Dosage: UNK
     Route: 048
     Dates: start: 20160105
  2. AMOXICILLINE /00249602/ [Concomitant]
     Active Substance: AMOXICILLIN
     Indication: NASOPHARYNGITIS
     Dosage: UNK
     Route: 048
     Dates: start: 20160105
  3. DESOMEDINE [Concomitant]
     Active Substance: HEXAMIDINE DIISETHIONATE
     Indication: NASOPHARYNGITIS
     Dosage: UNK
     Route: 047
     Dates: start: 20160105
  4. ADVILMED [Suspect]
     Active Substance: IBUPROFEN
     Indication: NASOPHARYNGITIS
     Dosage: UNK
     Route: 048
     Dates: start: 20160105, end: 2016

REACTIONS (6)
  - Hypersensitivity [Recovered/Resolved]
  - Abdominal pain [Recovered/Resolved]
  - Face oedema [Recovered/Resolved]
  - Wheezing [Unknown]
  - Nausea [Recovered/Resolved]
  - Rash [Unknown]

NARRATIVE: CASE EVENT DATE: 20160105
